FAERS Safety Report 4462281-8 (Version None)
Quarter: 2004Q3

REPORT INFORMATION
  Report Type: 
  Country: None (occurrence: None)
  Receive Date: 20040929
  Receipt Date: 20040926
  Transmission Date: 20050211
  Serious: Yes (Hospitalization)
  Sender: FDA-Public Use
  Company Number: DE-GLAXOSMITHKLINE-D0044777A

PATIENT
  Age: 50 Year
  Sex: Male

DRUGS (1)
  1. ARIXTRA [Suspect]
     Indication: PHLEBITIS
     Dosage: 2.5MG UNKNOWN
     Route: 058
     Dates: start: 20040101, end: 20040101

REACTIONS (1)
  - HAEMORRHAGIC DIATHESIS [None]
